FAERS Safety Report 12446950 (Version 1)
Quarter: 2016Q2

REPORT INFORMATION
  Report Type: Spontaneous
  Country: TR (occurrence: TR)
  Receive Date: 20160608
  Receipt Date: 20160608
  Transmission Date: 20160815
  Serious: Yes (Other)
  Sender: FDA-Public Use
  Company Number: TR-WATSON-2016-11824

PATIENT
  Age: 4 Year
  Sex: Male

DRUGS (1)
  1. RISPERIDONE (UNKNOWN) [Suspect]
     Active Substance: RISPERIDONE
     Indication: OPPOSITIONAL DEFIANT DISORDER
     Dosage: 1 FULL TABLESPOON (A TABLESPOON CONTAINS APPROXIMATELY 15 CM3 PER 15 MG OF LIQUID)
     Route: 048

REACTIONS (4)
  - Tetany [Recovered/Resolved]
  - Overdose [Recovered/Resolved]
  - Extrapyramidal disorder [Recovered/Resolved]
  - Incorrect dose administered [Recovered/Resolved]
